FAERS Safety Report 23192646 (Version 3)
Quarter: 2024Q1

REPORT INFORMATION
  Report Type: Spontaneous
  Country: US (occurrence: US)
  Receive Date: 20231116
  Receipt Date: 20240207
  Transmission Date: 20240409
  Serious: Yes (Disabling)
  Sender: FDA-Public Use
  Company Number: US-SA-SAC20231113000771

PATIENT
  Age: 62 Year
  Sex: Male

DRUGS (1)
  1. KEVZARA [Suspect]
     Active Substance: SARILUMAB
     Indication: Rheumatoid arthritis
     Dosage: 200 MG, QOW
     Route: 058
     Dates: start: 20231021

REACTIONS (5)
  - Loss of personal independence in daily activities [Unknown]
  - Mobility decreased [Unknown]
  - Gait disturbance [Unknown]
  - Gait inability [Unknown]
  - Pain [Recovering/Resolving]
